FAERS Safety Report 9351510 (Version 1)
Quarter: 2013Q2

REPORT INFORMATION
  Report Type: Spontaneous
  Country: US (occurrence: US)
  Receive Date: 20130617
  Receipt Date: 20130617
  Transmission Date: 20140414
  Serious: No
  Sender: FDA-Public Use
  Company Number: US-PFIZER INC-2013178198

PATIENT
  Age: 57 Year
  Sex: Female
  Weight: 86.2 kg

DRUGS (5)
  1. PREMPRO [Suspect]
     Indication: HOT FLUSH
     Dosage: 0.45 MG ESTROGENS CONJUGATED /1.5 MG MEDROXYPROGESTERONE ACETATE, 1X/DAY
     Route: 048
  2. ZOLOFT [Suspect]
     Indication: MENOPAUSAL DEPRESSION
     Dosage: 100 MG, 1X/DAY
     Route: 048
  3. MELOXICAM [Concomitant]
     Indication: ARTHROPATHY
     Dosage: 5.5 MG, 1X/DAY
     Route: 048
  4. CRESTOR [Concomitant]
     Indication: BLOOD CHOLESTEROL INCREASED
     Dosage: 20 MG, 1X/DAY
     Route: 048
  5. HYDROCHLOROTHIAZIDE [Concomitant]
     Dosage: 25 MG, 1X/DAY
     Route: 048

REACTIONS (1)
  - Dizziness [Not Recovered/Not Resolved]
